FAERS Safety Report 7636207-X (Version None)
Quarter: 2011Q3

REPORT INFORMATION
  Report Type: 
  Country: None (occurrence: None)
  Receive Date: 20110726
  Receipt Date: 20110714
  Transmission Date: 20111222
  Serious: Yes (Hospitalization)
  Sender: FDA-Public Use
  Company Number: US-JNJFOC-20110501520

PATIENT
  Age: 60 Year
  Sex: Female

DRUGS (4)
  1. REMICADE [Suspect]
     Route: 042
     Dates: start: 20110101
  2. REMICADE [Suspect]
     Indication: RHEUMATOID ARTHRITIS
     Dosage: 2 DOSES
     Route: 042
     Dates: start: 20110401, end: 20110401
  3. REMICADE [Suspect]
     Route: 042
     Dates: start: 20110328
  4. REMICADE [Suspect]
     Route: 042
     Dates: start: 20110228

REACTIONS (10)
  - LIP SWELLING [None]
  - RASH GENERALISED [None]
  - HYPOTENSION [None]
  - PRURITUS [None]
  - DYSPNOEA [None]
  - INFUSION RELATED REACTION [None]
  - ABDOMINAL PAIN [None]
  - URTICARIA [None]
  - CHILLS [None]
  - WHEEZING [None]
